FAERS Safety Report 4386870-4 (Version None)
Quarter: 2004Q2

REPORT INFORMATION
  Report Type: 
  Country: None (occurrence: None)
  Receive Date: 20040628
  Receipt Date: 20040628
  Transmission Date: 20050107
  Serious: Yes (Hospitalization)
  Sender: FDA-Public Use
  Company Number: None

PATIENT
  Sex: Female
  Weight: 55.7924 kg

DRUGS (1)
  1. VIOXX [Suspect]
     Indication: ROTATOR CUFF SYNDROME
     Dosage: 25 MG PO DAILY PRN
     Route: 048
     Dates: start: 20040618, end: 20040625

REACTIONS (1)
  - DUODENAL ULCER PERFORATION [None]
